FAERS Safety Report 6743535-9 (Version None)
Quarter: 2010Q2

REPORT INFORMATION
  Report Type: 
  Country: None (occurrence: None)
  Receive Date: 20100527
  Receipt Date: 20100515
  Transmission Date: 20101027
  Serious: Yes (Hospitalization)
  Sender: FDA-Public Use
  Company Number: US-JNJFOC-20100505753

PATIENT
  Age: 6 Year
  Sex: Male

DRUGS (4)
  1. CHILDREN'S MOTRIN [Suspect]
     Indication: PYREXIA
     Route: 048
  2. CHILDREN'S MOTRIN [Suspect]
     Indication: GASTROENTERITIS VIRAL
     Route: 048
  3. CHILDREN'S TYLENOL SUSPENSION [Suspect]
     Indication: PYREXIA
     Dosage: AS DIRECTED, EVERY 4 HOURS
     Route: 048
  4. CHILDREN'S TYLENOL SUSPENSION [Suspect]
     Indication: GASTROENTERITIS VIRAL
     Dosage: AS DIRECTED, EVERY 4 HOURS
     Route: 048

REACTIONS (4)
  - BACTERIAL INFECTION [None]
  - CONDITION AGGRAVATED [None]
  - LOCAL SWELLING [None]
  - PRODUCT QUALITY ISSUE [None]
